FAERS Safety Report 9444082 (Version 1)
Quarter: 2013Q3

REPORT INFORMATION
  Report Type: Spontaneous
  Country: IT (occurrence: IT)
  Receive Date: 20130807
  Receipt Date: 20130807
  Transmission Date: 20140515
  Serious: Yes (Hospitalization, Other)
  Sender: FDA-Public Use
  Company Number: IT-RANBAXY-2013RR-71616

PATIENT
  Age: 3 Year
  Sex: Male

DRUGS (1)
  1. PARACETAMOL [Suspect]
     Indication: PYREXIA
     Dosage: FIRST DOSE OF 20 MG/KG
     Route: 065

REACTIONS (1)
  - Autoimmune haemolytic anaemia [Recovering/Resolving]
